FAERS Safety Report 10779050 (Version 1)
Quarter: 2015Q1

REPORT INFORMATION
  Report Type: Spontaneous
  Country: US (occurrence: None)
  Receive Date: 20150205
  Receipt Date: 20150205
  Transmission Date: 20150721
  Serious: Yes (Life-Threatening, Hospitalization, Disabling, Other)
  Sender: FDA-Public Use
  Company Number: None

PATIENT
  Age: 51 Year
  Sex: Female
  Weight: 65.77 kg

DRUGS (4)
  1. SYNTHROID [Concomitant]
     Active Substance: LEVOTHYROXINE SODIUM
  2. SEROQUEL [Suspect]
     Active Substance: QUETIAPINE FUMARATE
     Indication: ANXIETY
     Dosage: 1 QID ORALLY AND PER PEG TUBE
     Route: 048
     Dates: start: 20130809, end: 20131112
  3. ASA [Concomitant]
     Active Substance: ASPIRIN
  4. BENADRYL [Concomitant]
     Active Substance: DIPHENHYDRAMINE HYDROCHLORIDE

REACTIONS (11)
  - Nausea [None]
  - Asthma [None]
  - Product quality issue [None]
  - Gastrooesophageal reflux disease [None]
  - Hypophagia [None]
  - Vomiting [None]
  - Emotional distress [None]
  - Malnutrition [None]
  - Infection [None]
  - Condition aggravated [None]
  - Dehydration [None]

NARRATIVE: CASE EVENT DATE: 200512
